FAERS Safety Report 15345799 (Version 1)
Quarter: 2018Q3

REPORT INFORMATION
  Report Type: Report from Study
  Country: US (occurrence: US)
  Receive Date: 20180904
  Receipt Date: 20180904
  Transmission Date: 20181010
  Serious: Yes (Other)
  Sender: FDA-Public Use
  Company Number: US-ROCHE-2177302

PATIENT
  Age: 58 Year
  Sex: Female

DRUGS (7)
  1. ISOSORBIDE MONONITRATE. [Concomitant]
     Active Substance: ISOSORBIDE MONONITRATE
     Dosage: 0.5 TABLET DAILY
     Route: 048
  2. MULTIPLEX [Concomitant]
     Route: 048
  3. CELLCEPT [Suspect]
     Active Substance: MYCOPHENOLATE MOFETIL\MYCOPHENOLATE MOFETIL HYDROCHLORIDE
     Indication: RENAL TRANSPLANT
     Route: 048
  4. TACROLIMUS. [Suspect]
     Active Substance: TACROLIMUS
     Indication: PRODUCT USED FOR UNKNOWN INDICATION
     Route: 048
  5. METHENAMINE [Concomitant]
     Active Substance: METHENAMINE
     Route: 048
  6. PREDNISONE. [Concomitant]
     Active Substance: PREDNISONE
     Route: 048
  7. THYMOGLOBULIN [Concomitant]
     Active Substance: LAPINE T-LYMPHOCYTE IMMUNE GLOBULIN
     Route: 065

REACTIONS (13)
  - Alopecia [Not Recovered/Not Resolved]
  - Peritonitis bacterial [Recovered/Resolved]
  - Bacterial pyelonephritis [Not Recovered/Not Resolved]
  - Renal mass [Recovered/Resolved]
  - Leukopenia [Recovered/Resolved]
  - Urinary tract infection [Not Recovered/Not Resolved]
  - Dehydration [Unknown]
  - Renal abscess [Not Recovered/Not Resolved]
  - Blister [Recovered/Resolved]
  - Tremor [Not Recovered/Not Resolved]
  - Lymphocele [Recovered/Resolved]
  - Cellulitis [Recovered/Resolved]
  - Deep vein thrombosis [Not Recovered/Not Resolved]

NARRATIVE: CASE EVENT DATE: 20151025
